FAERS Safety Report 9225424 (Version 3)
Quarter: 2013Q2

REPORT INFORMATION
  Report Type: Spontaneous
  Country: JP (occurrence: None)
  Receive Date: 20130409
  Receipt Date: 20130430
  Transmission Date: 20140414
  Serious: Yes (Hospitalization)
  Sender: FDA-Public Use
  Company Number: JP-2013-10859

PATIENT
  Age: 50 Year
  Sex: Female
  Weight: 64 kg

DRUGS (4)
  1. TOLVAPTAN [Suspect]
     Indication: CONGENITAL CYSTIC KIDNEY DISEASE
     Route: 048
     Dates: start: 20091212
  2. TOLVAPTAN [Suspect]
     Route: 048
     Dates: start: 20091212
  3. BLOPRESS (CANDESARTAN CILEXETIL) [Concomitant]
  4. ALDOMET (METHYLDOPA) [Concomitant]

REACTIONS (3)
  - Uterine leiomyoma [None]
  - Endometriosis [None]
  - Uterine cancer [None]
